FAERS Safety Report 8935379 (Version 1)
Quarter: 2012Q4

REPORT INFORMATION
  Report Type: Spontaneous
  Country: US (occurrence: None)
  Receive Date: 20121127
  Receipt Date: 20121127
  Transmission Date: 20130627
  Serious: Yes (Other)
  Sender: FDA-Public Use
  Company Number: None

PATIENT
  Age: 69 Year
  Sex: Female

DRUGS (1)
  1. MONTELUKAST SODIUM [Suspect]
     Indication: MULTIPLE ALLERGIES
     Dosage: 1 tablet, daily, po
     Route: 048
     Dates: start: 20120907, end: 20121006

REACTIONS (7)
  - Product substitution issue [None]
  - Drug ineffective [None]
  - Sneezing [None]
  - Rhinorrhoea [None]
  - Eye pruritus [None]
  - Drug dispensing error [None]
  - Expired drug administered [None]
